FAERS Safety Report 15337965 (Version 1)
Quarter: 2018Q3

REPORT INFORMATION
  Report Type: Spontaneous
  Country: US (occurrence: US)
  Receive Date: 20180831
  Receipt Date: 20180831
  Transmission Date: 20181010
  Serious: Yes (Death, Hospitalization, Other)
  Sender: FDA-Public Use
  Company Number: US-ASTELLAS-2018US038207

PATIENT
  Age: 12 Year
  Sex: Male

DRUGS (3)
  1. TACROLIMUS. [Suspect]
     Active Substance: TACROLIMUS
     Indication: LIVER TRANSPLANT
     Dosage: UNK UNK, UNKNOWN FREQ.
     Route: 065
  2. ENTECAVIR. [Suspect]
     Active Substance: ENTECAVIR
     Indication: HEPATITIS B
     Dosage: UNK UNK, UNKNOWN FREQ.
     Route: 065
  3. AZATHIOPRINE. [Concomitant]
     Active Substance: AZATHIOPRINE
     Indication: LIVER TRANSPLANT
     Dosage: UNK UNK, UNKNOWN FREQ.
     Route: 065

REACTIONS (24)
  - Renal tubular injury [Unknown]
  - Metabolic acidosis [Unknown]
  - Autoimmune haemolytic anaemia [Fatal]
  - Portal vein occlusion [Unknown]
  - Autoimmune hepatitis [Unknown]
  - Renal impairment [Unknown]
  - Multiple organ dysfunction syndrome [Fatal]
  - Anuria [Unknown]
  - Hypotension [Unknown]
  - Hepatitis B [Unknown]
  - Cholestasis [Unknown]
  - Thrombocytopenia [Unknown]
  - Ventricular fibrillation [Recovered/Resolved]
  - Anaemia [Unknown]
  - Sepsis [Unknown]
  - Jaundice [Unknown]
  - Portal vein thrombosis [Unknown]
  - Coagulopathy [Unknown]
  - Toxicity to various agents [Unknown]
  - Blood immunoglobulin M increased [Unknown]
  - Status epilepticus [Unknown]
  - Hyperbilirubinaemia [Unknown]
  - Histiocytosis haematophagic [Fatal]
  - Metabolic encephalopathy [Unknown]
